FAERS Safety Report 5263194-4 (Version None)
Quarter: 2007Q1

REPORT INFORMATION
  Report Type: 
  Country: None (occurrence: None)
  Receive Date: 20070312
  Receipt Date: 20070214
  Transmission Date: 20070707
  Serious: Yes (Disabling, Other)
  Sender: FDA-Public Use
  Company Number: US-PFIZER INC-2007017709

PATIENT
  Sex: Female

DRUGS (2)
  1. LIPITOR [Suspect]
     Dates: start: 20070112, end: 20070116
  2. SINEMET [Interacting]
     Indication: PARKINSON'S DISEASE

REACTIONS (6)
  - ASTHENIA [None]
  - DRUG INTERACTION [None]
  - MOTOR DYSFUNCTION [None]
  - MUSCULAR WEAKNESS [None]
  - SENSORY LOSS [None]
  - URINARY INCONTINENCE [None]
